FAERS Safety Report 10067553 (Version 2)
Quarter: 2014Q2

REPORT INFORMATION
  Report Type: Report from Study
  Country: CA (occurrence: CA)
  Receive Date: 20140409
  Receipt Date: 20140409
  Transmission Date: 20141212
  Serious: Yes (Hospitalization)
  Sender: FDA-Public Use
  Company Number: CA-UCBSA-010683

PATIENT
  Age: 19 Year
  Sex: Male
  Weight: 56.3 kg

DRUGS (10)
  1. CERTOLIZUMAB PEGOL [Suspect]
     Indication: CROHN^S DISEASE
     Route: 058
     Dates: start: 20090414, end: 2009
  2. CERTOLIZUMAB PEGOL [Suspect]
     Indication: CROHN^S DISEASE
     Route: 058
     Dates: start: 2009
  3. SULFASALAZINE [Concomitant]
     Indication: CROHN^S DISEASE
     Route: 048
     Dates: start: 200601
  4. AZATHIOPRINE [Concomitant]
     Indication: CROHN^S DISEASE
     Route: 048
     Dates: start: 200602
  5. IMODIUM [Concomitant]
     Indication: DIARRHOEA
     Route: 048
     Dates: start: 200801
  6. VITAMIN D [Concomitant]
     Indication: VITAMIN D DEFICIENCY
     Route: 048
     Dates: start: 200808
  7. CALCIUM [Concomitant]
     Indication: NUTRITIONAL SUPPLEMENTATION
     Route: 048
     Dates: start: 200808
  8. OMEPRAZOLE [Concomitant]
     Indication: DYSPEPSIA
     Route: 048
     Dates: start: 20090414
  9. TYLENOL # 3 [Concomitant]
     Indication: ABDOMINAL PAIN
     Dosage: 2 TABLETS RPN
     Route: 048
     Dates: start: 20091021
  10. TYLENOL ES [Concomitant]
     Indication: ABDOMINAL PAIN
     Dosage: 2 TABLETS PRN
     Route: 048
     Dates: start: 20091013

REACTIONS (1)
  - Migraine [Recovered/Resolved]
